FAERS Safety Report 12874735 (Version 2)
Quarter: 2016Q4

REPORT INFORMATION
  Report Type: Spontaneous
  Country: JP (occurrence: JP)
  Receive Date: 20161021
  Receipt Date: 20161101
  Transmission Date: 20170207
  Serious: Yes (Hospitalization)
  Sender: FDA-Public Use
  Company Number: JP-ASTRAZENECA-2016SF11266

PATIENT
  Age: 87 Year
  Sex: Female
  Weight: 46 kg

DRUGS (20)
  1. TEMOCAPRIL HYDROCHLORIDE [Concomitant]
     Active Substance: TEMOCAPRIL HYDROCHLORIDE
     Indication: HYPERTENSION
     Route: 048
     Dates: end: 20160925
  2. BAYASPIRIN [Concomitant]
     Active Substance: ASPIRIN
     Indication: PROPHYLAXIS
     Route: 048
     Dates: end: 20160925
  3. OPALMON [Concomitant]
     Active Substance: LIMAPROST
     Indication: PERIPHERAL ARTERIAL OCCLUSIVE DISEASE
     Route: 048
     Dates: end: 20160925
  4. REBAMIPIDE [Concomitant]
     Active Substance: REBAMIPIDE
     Indication: HAEMORRHAGE PROPHYLAXIS
     Route: 048
     Dates: end: 20160925
  5. SENNOSIDE [Concomitant]
     Active Substance: SENNOSIDES
     Indication: CONSTIPATION
     Route: 048
     Dates: start: 20090129
  6. WARFARIN [Concomitant]
     Active Substance: WARFARIN
     Indication: ATRIAL FIBRILLATION
     Route: 048
     Dates: start: 20090908
  7. PARIET [Concomitant]
     Active Substance: RABEPRAZOLE SODIUM
     Indication: HAEMORRHAGE PROPHYLAXIS
     Route: 048
     Dates: end: 20160925
  8. VALSARTAN. [Concomitant]
     Active Substance: VALSARTAN
     Indication: HYPERTENSION
     Route: 048
  9. CYTOTEC [Concomitant]
     Active Substance: MISOPROSTOL
     Indication: HAEMORRHAGE PROPHYLAXIS
     Route: 048
     Dates: start: 20110726, end: 20160925
  10. FERRUM [Concomitant]
     Active Substance: FERROUS FUMARATE
     Indication: MICROCYTIC ANAEMIA
     Dosage: DAILY
     Route: 048
     Dates: start: 20090908, end: 20160925
  11. GOODMIN [Concomitant]
     Active Substance: BROTIZOLAM
     Indication: INSOMNIA
     Route: 048
  12. CIBENZOLINE SUCCINATE [Suspect]
     Active Substance: CIFENLINE SUCCINATE
     Indication: ATRIAL FIBRILLATION
     Route: 048
     Dates: end: 20160925
  13. LANTUS [Concomitant]
     Active Substance: INSULIN GLARGINE
     Indication: DIABETES MELLITUS
     Dosage: GENETICAL RECOMBINATION, 7 IU DAILY
     Route: 042
     Dates: start: 20110802
  14. CARDENALIN [Concomitant]
     Active Substance: DOXAZOSIN MESYLATE
     Indication: HYPERTENSION
     Route: 048
     Dates: end: 20160925
  15. SUREPOST [Concomitant]
     Active Substance: REPAGLINIDE
     Indication: DIABETES MELLITUS
     Route: 048
     Dates: start: 20130722, end: 20160925
  16. ONGLYZA [Suspect]
     Active Substance: SAXAGLIPTIN HYDROCHLORIDE
     Indication: DIABETES MELLITUS
     Route: 048
     Dates: start: 20160704, end: 20160925
  17. PRAVASTATIN NA [Concomitant]
     Active Substance: PRAVASTATIN SODIUM
     Indication: DYSLIPIDAEMIA
     Route: 048
     Dates: end: 20160925
  18. ISOCORONAL R [Concomitant]
     Active Substance: ISOSORBIDE DINITRATE
     Indication: ARTERIOSCLEROSIS CORONARY ARTERY
     Route: 048
     Dates: end: 20160925
  19. NIFEDIPINE CR [Concomitant]
     Active Substance: NIFEDIPINE
     Indication: HYPERTENSION
     Route: 048
     Dates: end: 20160925
  20. ANPLAG [Concomitant]
     Active Substance: SARPOGRELATE
     Indication: PERIPHERAL ARTERIAL OCCLUSIVE DISEASE
     Route: 048
     Dates: start: 20100209, end: 20160925

REACTIONS (4)
  - Aortic valve stenosis [Unknown]
  - Pneumonia [Unknown]
  - Cardiac failure [Recovered/Resolved]
  - Myocardial ischaemia [Unknown]

NARRATIVE: CASE EVENT DATE: 201609
